FAERS Safety Report 10160626 (Version 1)
Quarter: 2014Q2

REPORT INFORMATION
  Report Type: Spontaneous
  Country: DE (occurrence: DE)
  Receive Date: 20140508
  Receipt Date: 20140508
  Transmission Date: 20141212
  Serious: Yes (Disabling)
  Sender: FDA-Public Use
  Company Number: DE-WATSON-2014-09163

PATIENT
  Age: 20 Year
  Sex: Female
  Weight: 58 kg

DRUGS (3)
  1. TOPIRAMATE (UNKNOWN) [Suspect]
     Indication: EPILEPSY
     Dosage: 75 MG, BID
     Route: 048
     Dates: start: 201109
  2. LACOSAMIDE [Suspect]
     Indication: EPILEPSY
     Dosage: 75 MG, DAILY
     Route: 048
     Dates: start: 201112
  3. LACOSAMIDE [Suspect]
     Dosage: 100 MG, DAILY
     Route: 048
     Dates: start: 201112

REACTIONS (1)
  - Retinal vascular occlusion [Recovering/Resolving]
